FAERS Safety Report 8251221-1 (Version None)
Quarter: 2012Q2

REPORT INFORMATION
  Report Type: 
  Country: None (occurrence: None)
  Receive Date: 20120402
  Receipt Date: 20120322
  Transmission Date: 20120825
  Serious: Yes (Other)
  Sender: FDA-Public Use
  Company Number: US-ASTRAZENECA-2011SE39417

PATIENT
  Age: 38 Year
  Sex: Female

DRUGS (3)
  1. ZOMIG [Suspect]
     Route: 048
  2. IMATRIX [Concomitant]
  3. TEGRETOL [Suspect]
     Route: 065

REACTIONS (3)
  - MIGRAINE [None]
  - CONVULSION [None]
  - DRUG DOSE OMISSION [None]
